FAERS Safety Report 7169539-2 (Version None)
Quarter: 2010Q4

REPORT INFORMATION
  Report Type: 
  Country: None (occurrence: None)
  Receive Date: 20101217
  Receipt Date: 20101208
  Transmission Date: 20110411
  Serious: Yes (Death, Other)
  Sender: FDA-Public Use
  Company Number: US-CELGENEUS-163-21880-10110547

PATIENT
  Sex: Male

DRUGS (2)
  1. REVLIMID [Suspect]
     Indication: MULTIPLE MYELOMA
     Route: 048
     Dates: start: 20070601
  2. REVLIMID [Suspect]
     Route: 048
     Dates: start: 20081001, end: 20101001

REACTIONS (2)
  - SEPSIS [None]
  - URINARY TRACT INFECTION [None]
